FAERS Safety Report 6947915-8 (Version None)
Quarter: 2010Q3

REPORT INFORMATION
  Report Type: 
  Country: None (occurrence: None)
  Receive Date: 20100828
  Receipt Date: 20091007
  Transmission Date: 20110219
  Serious: No
  Sender: FDA-Public Use
  Company Number: US-ABBOTT-09P-163-0601949-00

PATIENT
  Sex: Female
  Weight: 86.26 kg

DRUGS (1)
  1. NIASPAN [Suspect]
     Indication: DYSLIPIDAEMIA
     Route: 048
     Dates: start: 20090801

REACTIONS (2)
  - FEELING HOT [None]
  - PARAESTHESIA [None]
